FAERS Safety Report 22535392 (Version 1)
Quarter: 2023Q2

REPORT INFORMATION
  Report Type: Spontaneous
  Country: IN (occurrence: IN)
  Receive Date: 20230608
  Receipt Date: 20230608
  Transmission Date: 20230721
  Serious: Yes (Other)
  Sender: FDA-Public Use
  Company Number: IN-PFIZER INC-202200483901

PATIENT
  Age: 55 Year
  Sex: Female
  Weight: 64 kg

DRUGS (4)
  1. PALBOCICLIB [Suspect]
     Active Substance: PALBOCICLIB
     Indication: Breast cancer metastatic
     Dosage: 125 MG, CYCLIC (ONCE DAILY FOR 3 WEEKS (21 DAYS) FOLLOWED BY 1 WEEK OFF (7 DAYS))
     Route: 048
     Dates: start: 20211222
  2. LETROZOLE [Concomitant]
     Active Substance: LETROZOLE
     Indication: Breast cancer metastatic
     Dosage: 2.5 MG, 1X/DAY
     Dates: start: 202112
  3. ZOLEDRONIC ACID [Concomitant]
     Active Substance: ZOLEDRONIC ACID
     Indication: Breast cancer metastatic
     Dosage: UNK, CYCLIC (4 WEEKLY/MONTHLY)
     Route: 042
     Dates: start: 202112
  4. SHELCAL [CALCIUM CARBONATE;COLECALCIFEROL] [Concomitant]
     Dosage: 500 MG, 1X/DAY (IN BETWEEN MEALS)

REACTIONS (15)
  - Neutropenia [Unknown]
  - Necrosis [Unknown]
  - Haemoglobin abnormal [Not Recovered/Not Resolved]
  - Alanine aminotransferase increased [Unknown]
  - Neutrophil percentage increased [Unknown]
  - Platelet count abnormal [Not Recovered/Not Resolved]
  - Rash [Unknown]
  - Asthenia [Unknown]
  - Arthralgia [Unknown]
  - Neutrophil percentage decreased [Unknown]
  - White blood cell count decreased [Unknown]
  - Pain in extremity [Unknown]
  - Weight increased [Unknown]
  - Pain [Unknown]
  - Bone lesion [Unknown]

NARRATIVE: CASE EVENT DATE: 20220322
